FAERS Safety Report 8201747-1 (Version None)
Quarter: 2012Q1

REPORT INFORMATION
  Report Type: 
  Country: None (occurrence: None)
  Receive Date: 20120307
  Receipt Date: 20120227
  Transmission Date: 20120608
  Serious: Yes (Hospitalization, Other)
  Sender: FDA-Public Use
  Company Number: AUR-APL-2012-01193

PATIENT
  Age: 22 Year
  Sex: Female

DRUGS (7)
  1. FLUCYTOSINE [Suspect]
     Indication: RENAL IMPAIRMENT
  2. FLUCONAZOLE [Suspect]
     Indication: CRYPTOCOCCOSIS
     Dosage: (200 MG, 1 D)
  3. AMPHOTERICIN B [Suspect]
     Indication: CRYPTOCOCCOSIS
     Dosage: (5 MG/KG, 1 D)
  4. MYCOPHENOLATE MOFETIL [Suspect]
     Indication: IMMUNOSUPPRESSION
  5. TACROLIMUS [Suspect]
     Indication: IMMUNOSUPPRESSION
  6. PREDNISONE TAB [Suspect]
     Indication: IMMUNOSUPPRESSION
  7. MUROMONAB-CD3 (MUROMONAB-CD3) [Suspect]
     Indication: KIDNEY TRANSPLANT REJECTION

REACTIONS (18)
  - PYREXIA [None]
  - CSF PRESSURE INCREASED [None]
  - KIDNEY TRANSPLANT REJECTION [None]
  - HEADACHE [None]
  - RENAL IMPAIRMENT [None]
  - TREATMENT FAILURE [None]
  - CSF GLUCOSE DECREASED [None]
  - CSF CULTURE POSITIVE [None]
  - IMMUNE RECONSTITUTION SYNDROME [None]
  - CLONUS [None]
  - PAPILLOEDEMA [None]
  - CRYPTOCOCCOSIS [None]
  - BLOOD CREATINE INCREASED [None]
  - CSF WHITE BLOOD CELL COUNT INCREASED [None]
  - MENINGITIS [None]
  - DIALYSIS [None]
  - NAUSEA [None]
  - CSF PROTEIN INCREASED [None]
